FAERS Safety Report 5173409-9 (Version None)
Quarter: 2006Q4

REPORT INFORMATION
  Report Type: 
  Country: None (occurrence: None)
  Receive Date: 20061214
  Receipt Date: 20061208
  Transmission Date: 20070319
  Serious: Yes (Death, Hospitalization, Other)
  Sender: FDA-Public Use
  Company Number: ES-BRISTOL-MYERS SQUIBB COMPANY-13606462

PATIENT
  Age: 66 Year
  Sex: Female

DRUGS (5)
  1. CISPLATIN [Suspect]
     Indication: GASTRIC CANCER
     Route: 041
     Dates: start: 20060824, end: 20060824
  2. FLUOROURACIL [Suspect]
     Indication: GASTRIC CANCER
     Route: 041
     Dates: start: 20060824, end: 20060827
  3. PAROXETINE HCL [Concomitant]
     Indication: ANXIETY
     Route: 048
     Dates: start: 20060712
  4. TRAMADOL HCL [Concomitant]
     Indication: PAIN
     Route: 048
     Dates: start: 20060712
  5. MEGESTROL ACETATE [Concomitant]
     Indication: INCREASED APPETITE
     Route: 048
     Dates: start: 20060712

REACTIONS (4)
  - ACUTE PULMONARY OEDEMA [None]
  - OTOTOXICITY [None]
  - RENAL FAILURE [None]
  - VOMITING [None]
